FAERS Safety Report 7812232-0 (Version None)
Quarter: 2011Q4

REPORT INFORMATION
  Report Type: 
  Country: None (occurrence: None)
  Receive Date: 20111011
  Receipt Date: 20110930
  Transmission Date: 20120403
  Serious: Yes (Other)
  Sender: FDA-Public Use
  Company Number: TRP_07893_2011

PATIENT
  Age: 65 Year
  Sex: Female
  Weight: 79.3795 kg

DRUGS (20)
  1. COZAAR [Suspect]
     Indication: HYPERTENSION
     Dosage: 50 MG DAILY
  2. ASPIRIN [Suspect]
     Dosage: 81 MG DAILY, ORAL
     Route: 048
  3. CALCIUM CARBONATE [Concomitant]
  4. PEGINTERFERON ALFA-2A [Suspect]
     Indication: HEPATITIS C
     Dosage: 180 MICROGRAM/0.5 ML,1 EACH FRIDAY NIGHT ; 180 MICROGRAM/ML WEEKLY, SUBCUTANEOUS
     Route: 058
     Dates: start: 20050901, end: 20060201
  5. PEGINTERFERON ALFA-2A [Suspect]
     Indication: HEPATITIS C
     Dosage: 180 MICROGRAM/0.5 ML,1 EACH FRIDAY NIGHT ; 180 MICROGRAM/ML WEEKLY, SUBCUTANEOUS
     Route: 058
     Dates: start: 20110729
  6. METOCLOPRAMIDE HYDROCHLORIDE [Concomitant]
  7. VICTRELIS [Suspect]
     Indication: HEPATITIS C
     Dosage: 200 MG (FOUR THRICE DAILY),ORAL
     Route: 048
     Dates: start: 20110826
  8. PRADAXA [Suspect]
     Indication: ANTICOAGULANT THERAPY
     Dosage: 150 MG AM AND PM, ORAL ; 75MG DAILY, ORAL
     Route: 048
  9. TOPROL-XL [Suspect]
     Indication: HYPERTENSION
     Dosage: 50 MG ONCE DAILY,ORAL ; 25MG DAILY, ORAL
     Route: 048
     Dates: start: 20080101
  10. ACETAMINOPHEN [Suspect]
  11. FISH OIL WITH OMEGA3 FATTY ACIDS [Concomitant]
  12. NUVIGIL [Suspect]
     Dosage: 50MG DAILY, ORAL
     Route: 048
  13. RIBAVIRIN [Suspect]
     Indication: HEPATITIS C
     Dosage: 600 MG, ONE IN AM AND PM ; 600MG AM AND 400MG PM, ORAL
     Route: 048
     Dates: start: 20110923
  14. RIBAVIRIN [Suspect]
     Indication: HEPATITIS C
     Dosage: 600 MG, ONE IN AM AND PM ; 600MG AM AND 400MG PM, ORAL
     Route: 048
     Dates: start: 20050901, end: 20060201
  15. RIBAVIRIN [Suspect]
     Indication: HEPATITIS C
     Dosage: 600 MG, ONE IN AM AND PM ; 600MG AM AND 400MG PM, ORAL
     Route: 048
     Dates: start: 20110729
  16. ZOFRAN [Suspect]
     Indication: NAUSEA
     Dosage: 8 MG (ONE EVERY 12 HRS AS NEEDED), ORAL
     Route: 048
     Dates: start: 20110826
  17. MULTI-VITAMINS [Concomitant]
  18. RYTHMOL SR (PROPAPHENONE HCL) [Suspect]
     Indication: ATRIAL FIBRILLATION
     Dosage: 325 MG (AM AND PM EACH),ORAL
     Route: 048
     Dates: start: 20080101
  19. CALCIUM PLUS VITAMIN D [Concomitant]
  20. REGLAN [Concomitant]

REACTIONS (34)
  - UNDERDOSE [None]
  - EYE PAIN [None]
  - BLOOD URINE PRESENT [None]
  - SINUSITIS [None]
  - LEUKOPENIA [None]
  - TABLET PHYSICAL ISSUE [None]
  - PHOTOPHOBIA [None]
  - EYE IRRITATION [None]
  - VULVOVAGINAL PAIN [None]
  - BLOOD GLUCOSE DECREASED [None]
  - TREATMENT NONCOMPLIANCE [None]
  - BLOOD BILIRUBIN INCREASED [None]
  - WRONG TECHNIQUE IN DRUG USAGE PROCESS [None]
  - DYSGEUSIA [None]
  - DYSPHAGIA [None]
  - PRURITUS [None]
  - DRY EYE [None]
  - NAUSEA [None]
  - ASTHENIA [None]
  - HAEMORRHOIDS [None]
  - ANAEMIA [None]
  - HAEMORRHOIDAL HAEMORRHAGE [None]
  - STOMATITIS [None]
  - WEIGHT DECREASED [None]
  - UPPER-AIRWAY COUGH SYNDROME [None]
  - FEELING ABNORMAL [None]
  - HYPOPHAGIA [None]
  - SOMNOLENCE [None]
  - PRODUCT PACKAGING ISSUE [None]
  - ALOPECIA [None]
  - DYSURIA [None]
  - DISEASE RECURRENCE [None]
  - TRANSAMINASES INCREASED [None]
  - POOR QUALITY DRUG ADMINISTERED [None]
